FAERS Safety Report 6275497-5 (Version None)
Quarter: 2009Q3

REPORT INFORMATION
  Report Type: 
  Country: None (occurrence: None)
  Receive Date: 20090721
  Receipt Date: 20090629
  Transmission Date: 20100115
  Serious: Yes (Death, Hospitalization)
  Sender: FDA-Public Use
  Company Number: TR-ROCHE-633879

PATIENT
  Sex: Female
  Weight: 65 kg

DRUGS (5)
  1. CAPECITABINE [Suspect]
     Indication: COLORECTAL CANCER
     Dosage: DRUG REPORTED AS CAPECITABINE 600, CAPECITABINE 150
     Route: 048
     Dates: start: 20090115
  2. BEVACIZUMAB [Suspect]
     Indication: COLORECTAL CANCER
     Dosage: BEVACIZUMAB 400 BEVACIZUMAB 100
     Route: 042
     Dates: start: 20090115
  3. OXALIPLATIN [Suspect]
     Indication: COLORECTAL CANCER
     Dosage: DRUG REPORTED AS OXALIPLATIN 100 AND ELOXATIN 50
     Route: 051
     Dates: start: 20090115
  4. ONDANSETRON [Concomitant]
  5. PREDNISOLONE [Concomitant]

REACTIONS (3)
  - FEBRILE NEUTROPENIA [None]
  - SEPSIS [None]
  - THROMBOCYTOPENIA [None]
